FAERS Safety Report 21188854 (Version 1)
Quarter: 2022Q3

REPORT INFORMATION
  Report Type: Spontaneous
  Country: US (occurrence: None)
  Receive Date: 20220809
  Receipt Date: 20220809
  Transmission Date: 20221027
  Serious: No
  Sender: FDA-Public Use
  Company Number: 2022A267399

PATIENT

DRUGS (2)
  1. FASLODEX [Suspect]
     Active Substance: FULVESTRANT
     Route: 030
  2. IBRANCE [Suspect]
     Active Substance: PALBOCICLIB
     Indication: Product used for unknown indication
     Dosage: 1 CAPSULE DAILY FOR 3 WEEKS THEN OFF FOR 1 WEEK
     Route: 046
     Dates: start: 20220325

REACTIONS (2)
  - Hypoaesthesia [Not Recovered/Not Resolved]
  - Injection site oedema [Not Recovered/Not Resolved]
